FAERS Safety Report 20719045 (Version 1)
Quarter: 2022Q2

REPORT INFORMATION
  Report Type: Spontaneous
  Country: US (occurrence: None)
  Receive Date: 20220415
  Receipt Date: 20220415
  Transmission Date: 20220720
  Serious: No
  Sender: FDA-Public Use
  Company Number: None

PATIENT
  Sex: Female

DRUGS (1)
  1. VUMERITY [Suspect]
     Active Substance: DIROXIMEL FUMARATE
     Indication: Multiple sclerosis
     Dosage: OTHER QUANTITY : 1 CAPSULE, 2 CAPSU;?FREQUENCY : TWICE A DAY;?
     Route: 048

REACTIONS (2)
  - Hypersensitivity [None]
  - Therapy cessation [None]
